FAERS Safety Report 4929537-3 (Version None)
Quarter: 2006Q1

REPORT INFORMATION
  Report Type: 
  Country: None (occurrence: None)
  Receive Date: 20060224
  Receipt Date: 20060210
  Transmission Date: 20060701
  Serious: Yes (Other)
  Sender: FDA-Public Use
  Company Number: 2006RL000042

PATIENT
  Sex: 0

DRUGS (1)
  1. PROPRANOLOL HYDROCHLORIDE (PROPRANOLOL HYDROCHLORIDE) PROPHYLAXIS [Suspect]
     Indication: PORTAL HYPERTENSION
     Dosage: PO
     Route: 048

REACTIONS (1)
  - ACUTE PRERENAL FAILURE [None]
